FAERS Safety Report 12826173 (Version 1)
Quarter: 2016Q4

REPORT INFORMATION
  Report Type: Spontaneous
  Country: US (occurrence: US)
  Receive Date: 20161006
  Receipt Date: 20161006
  Transmission Date: 20170207
  Serious: No
  Sender: FDA-Public Use
  Company Number: US-JAZZ-2016-US-012508

PATIENT
  Sex: Female

DRUGS (28)
  1. XYREM [Suspect]
     Active Substance: SODIUM OXYBATE
     Dosage: DOSE ADJUSTMENTS
     Route: 048
     Dates: start: 200712, end: 201501
  2. ATIVAN [Concomitant]
     Active Substance: LORAZEPAM
  3. PROMETRIUM [Concomitant]
     Active Substance: PROGESTERONE
  4. ACYCLOVIR. [Concomitant]
     Active Substance: ACYCLOVIR
  5. BACLOFEN. [Concomitant]
     Active Substance: BACLOFEN
  6. CIPRO [Concomitant]
     Active Substance: CIPROFLOXACIN HYDROCHLORIDE
  7. VITAMIN D [Concomitant]
     Active Substance: CHOLECALCIFEROL
  8. XYREM [Suspect]
     Active Substance: SODIUM OXYBATE
     Dosage: 4.5 G, BID
     Route: 048
     Dates: start: 201501
  9. NAPROXEN. [Concomitant]
     Active Substance: NAPROXEN
  10. TYLENOL EXTRA STRENGTH [Concomitant]
     Active Substance: ACETAMINOPHEN
  11. ABILIFY [Concomitant]
     Active Substance: ARIPIPRAZOLE
  12. FOLIC ACID. [Concomitant]
     Active Substance: FOLIC ACID
  13. PROGESTERONE. [Concomitant]
     Active Substance: PROGESTERONE
  14. TRAZODONE [Concomitant]
     Active Substance: TRAZODONE HYDROCHLORIDE
  15. XYREM [Suspect]
     Active Substance: SODIUM OXYBATE
     Indication: NARCOLEPSY
     Dosage: 2.25 G, BID
     Route: 048
     Dates: start: 200603, end: 200712
  16. MODAFINIL. [Concomitant]
     Active Substance: MODAFINIL
  17. SPIRONOLACTONE. [Concomitant]
     Active Substance: SPIRONOLACTONE
  18. VITAMIN D [Concomitant]
     Active Substance: CHOLECALCIFEROL
  19. BIOTIN [Concomitant]
     Active Substance: BIOTIN
  20. LAMOTRIGINE. [Concomitant]
     Active Substance: LAMOTRIGINE
  21. PROAIR HFA [Concomitant]
     Active Substance: ALBUTEROL SULFATE
  22. VITAMIN B12 [Concomitant]
     Active Substance: CYANOCOBALAMIN
  23. LORAZEPAM. [Concomitant]
     Active Substance: LORAZEPAM
  24. LEVOTHYROXINE. [Concomitant]
     Active Substance: LEVOTHYROXINE
  25. NEURONTIN [Concomitant]
     Active Substance: GABAPENTIN
  26. ROZEREM [Concomitant]
     Active Substance: RAMELTEON
  27. CYMBALTA [Concomitant]
     Active Substance: DULOXETINE HYDROCHLORIDE
  28. SPIRIVA [Concomitant]
     Active Substance: TIOTROPIUM BROMIDE MONOHYDRATE

REACTIONS (1)
  - Visual acuity reduced [Not Recovered/Not Resolved]
